FAERS Safety Report 20510621 (Version 1)
Quarter: 2022Q1

REPORT INFORMATION
  Report Type: Spontaneous
  Country: RU (occurrence: RU)
  Receive Date: 20220224
  Receipt Date: 20220224
  Transmission Date: 20220423
  Serious: Yes (Hospitalization, Other)
  Sender: FDA-Public Use
  Company Number: RU-AMGEN-RUSSP2022027209

PATIENT
  Age: 34 Year
  Sex: Female
  Weight: 72 kg

DRUGS (2)
  1. CINACALCET HYDROCHLORIDE [Suspect]
     Active Substance: CINACALCET HYDROCHLORIDE
     Indication: Hypercalcaemia
     Dosage: 60 MILLIGRAM, QD
     Route: 065
     Dates: start: 2018
  2. CINACALCET HYDROCHLORIDE [Suspect]
     Active Substance: CINACALCET HYDROCHLORIDE
     Dosage: 30 MILLIGRAM, QD
     Route: 065

REACTIONS (11)
  - Nephrolithiasis [Unknown]
  - High turnover osteopathy [Unknown]
  - Hungry bone syndrome [Unknown]
  - Hyperadrenocorticism [Unknown]
  - Parathyroid tumour benign [Unknown]
  - Spinal compression fracture [Unknown]
  - Chronic tonsillitis [Unknown]
  - Hyperplasia adrenal [Unknown]
  - Drug ineffective [Unknown]
  - Blood calcium increased [Unknown]
  - Upper respiratory tract infection [Unknown]
